FAERS Safety Report 8547142-7 (Version None)
Quarter: 2012Q3

REPORT INFORMATION
  Report Type: 
  Country: None (occurrence: None)
  Receive Date: 20120727
  Receipt Date: 20120220
  Transmission Date: 20120928
  Serious: No
  Sender: FDA-Public Use
  Company Number: US-ASTRAZENECA-2012SE11798

PATIENT
  Age: 47 Year
  Sex: Female
  Weight: 77.1 kg

DRUGS (6)
  1. ESTRADIOL [Concomitant]
     Indication: HORMONE REPLACEMENT THERAPY
  2. FLUOXETINE HYDROCHLORIDE [Concomitant]
     Indication: ANTIDEPRESSANT THERAPY
  3. SEROQUEL [Suspect]
     Route: 048
     Dates: start: 20111001
  4. SEROQUEL [Suspect]
     Indication: BIPOLAR I DISORDER
     Route: 048
     Dates: start: 20050101, end: 20111001
  5. SEROQUEL [Suspect]
     Indication: SLEEP DISORDER
     Route: 048
     Dates: start: 20050101, end: 20111001
  6. SEROQUEL [Suspect]
     Route: 048
     Dates: start: 20111001

REACTIONS (5)
  - POOR QUALITY SLEEP [None]
  - OFF LABEL USE [None]
  - ABNORMAL DREAMS [None]
  - TACHYPHRENIA [None]
  - MANIA [None]
